FAERS Safety Report 7000930-0 (Version None)
Quarter: 2010Q3

REPORT INFORMATION
  Report Type: 
  Country: None (occurrence: None)
  Receive Date: 20100920
  Receipt Date: 20100915
  Transmission Date: 20110219
  Serious: Yes (Death, Hospitalization, Other)
  Sender: FDA-Public Use
  Company Number: PHHY2010JP61428

PATIENT
  Sex: Female

DRUGS (4)
  1. CGS 20267 T30748+TAB [Suspect]
     Indication: BREAST CANCER
     Dosage: 2.5 MG DAILY
     Route: 048
     Dates: start: 20071225, end: 20080625
  2. UFT [Concomitant]
     Indication: BREAST CANCER
     Dosage: 300 MG
     Route: 048
     Dates: start: 20080920, end: 20091111
  3. LEUCOVORIN CALCIUM [Concomitant]
     Indication: BREAST CANCER
     Dosage: 75 MG
     Route: 048
     Dates: start: 20080920, end: 20091111
  4. TASUOMIN [Concomitant]
     Indication: BREAST CANCER
     Dosage: 20 MG
     Route: 048
     Dates: start: 20080625, end: 20091111

REACTIONS (6)
  - ILEAL OPERATION [None]
  - LARGE INTESTINE CARCINOMA [None]
  - METASTASES TO LUNG [None]
  - NEOPLASM MALIGNANT [None]
  - SURGERY [None]
  - THYROID CANCER [None]
